FAERS Safety Report 14025183 (Version 1)
Quarter: 2017Q3

REPORT INFORMATION
  Report Type: Spontaneous
  Country: US (occurrence: US)
  Receive Date: 20170929
  Receipt Date: 20170929
  Transmission Date: 20171128
  Serious: No
  Sender: FDA-Public Use
  Company Number: US-B.I. PHARMACEUTICALS,INC./RIDGEFIELD-2017-BI-051770

PATIENT
  Sex: Male

DRUGS (1)
  1. GILOTRIF [Suspect]
     Active Substance: AFATINIB
     Indication: LUNG SQUAMOUS CELL CARCINOMA METASTATIC
     Dosage: 50MG ONCE DAILY;  FORM STRENGTH: 50 MG; FORMULATION: TABLET? ADMINISTRATION CORRECT? NR(NOT REPORTED
     Route: 048

REACTIONS (2)
  - Overdose [Unknown]
  - Rash [Recovered/Resolved]
